FAERS Safety Report 8445251-4 (Version None)
Quarter: 2012Q2

REPORT INFORMATION
  Report Type: 
  Country: None (occurrence: None)
  Receive Date: 20120618
  Receipt Date: 20120613
  Transmission Date: 20120825
  Serious: Yes (Other)
  Sender: FDA-Public Use
  Company Number: US-JNJFOC-20120603854

PATIENT
  Age: 34 Year
  Sex: Female

DRUGS (3)
  1. BENADRYL [Suspect]
     Indication: SLEEP DISORDER THERAPY
     Route: 048
     Dates: start: 20120605, end: 20120605
  2. VIMPAT [Concomitant]
     Indication: CONVULSION
     Route: 065
  3. LEVETIRACETAM [Concomitant]
     Indication: CONVULSION
     Route: 065

REACTIONS (3)
  - OFF LABEL USE [None]
  - CONVULSION [None]
  - FATIGUE [None]
